FAERS Safety Report 5503112-4 (Version None)
Quarter: 2007Q4

REPORT INFORMATION
  Report Type: 
  Country: None (occurrence: None)
  Receive Date: 20071029
  Receipt Date: 20071029
  Transmission Date: 20080405
  Serious: Yes (Other)
  Sender: FDA-Public Use
  Company Number: None

PATIENT
  Age: 62 Year
  Sex: Male
  Weight: 88.4514 kg

DRUGS (1)
  1. BUDEPRION SR 150MG [Suspect]
     Indication: DEPRESSION
     Dosage: 150 MG  TWICE DAILY
     Dates: start: 20070727, end: 20071027

REACTIONS (5)
  - COGNITIVE DISORDER [None]
  - FATIGUE [None]
  - INSOMNIA [None]
  - IRRITABILITY [None]
  - PHARMACEUTICAL PRODUCT COMPLAINT [None]
